FAERS Safety Report 8830194 (Version 1)
Quarter: 2012Q4

REPORT INFORMATION
  Report Type: Report from Study
  Country: BJ (occurrence: BJ)
  Receive Date: 20121008
  Receipt Date: 20121008
  Transmission Date: 20130627
  Serious: Yes (Hospitalization, Other)
  Sender: FDA-Public Use
  Company Number: BJ-BAYER-2012-104441

PATIENT
  Age: 1 Year
  Sex: Female

DRUGS (2)
  1. ACETYLSALICYLIC ACID (} 100 MG) [Suspect]
  2. QUININE [Suspect]

REACTIONS (1)
  - Stevens-Johnson syndrome [Recovered/Resolved]
